FAERS Safety Report 19083897 (Version 1)
Quarter: 2021Q2

REPORT INFORMATION
  Report Type: Spontaneous
  Country: CA (occurrence: CA)
  Receive Date: 20210401
  Receipt Date: 20210401
  Transmission Date: 20210717
  Serious: Yes (Hospitalization, Other)
  Sender: FDA-Public Use
  Company Number: CA-ABBVIE-20K-028-3652186-00

PATIENT
  Sex: Female

DRUGS (5)
  1. SULFASALAZINE. [Suspect]
     Active Substance: SULFASALAZINE
     Indication: PRODUCT USED FOR UNKNOWN INDICATION
     Dosage: DURATION: 6 MONTHS
     Route: 065
     Dates: start: 201807, end: 201812
  2. AZATHIOPRINE. [Suspect]
     Active Substance: AZATHIOPRINE
     Indication: PRODUCT USED FOR UNKNOWN INDICATION
     Dosage: DURATION: 111 DAYS
     Route: 065
     Dates: start: 20200507, end: 20200825
  3. HUMIRA [Suspect]
     Active Substance: ADALIMUMAB
     Indication: RHEUMATOID ARTHRITIS
     Dosage: DURATION: 9 YEARS
     Route: 058
     Dates: start: 201009, end: 20190225
  4. PLAQUENIL [Suspect]
     Active Substance: HYDROXYCHLOROQUINE SULFATE
     Indication: PRODUCT USED FOR UNKNOWN INDICATION
     Dosage: DURATION: 16 YEARS
     Route: 065
     Dates: start: 2003, end: 20170824
  5. METHOTREXATE. [Suspect]
     Active Substance: METHOTREXATE
     Indication: PRODUCT USED FOR UNKNOWN INDICATION
     Dosage: 6 TABS EVERY WEEK, DURATION: 12 MONTHS
     Route: 048
     Dates: start: 201708, end: 20180626

REACTIONS (10)
  - Therapeutic product effect incomplete [Unknown]
  - Adverse event [Unknown]
  - Rheumatoid factor positive [Unknown]
  - Pericarditis [Unknown]
  - Interstitial lung disease [Unknown]
  - Adverse drug reaction [Unknown]
  - Antibody test positive [Unknown]
  - Anti-cyclic citrullinated peptide antibody positive [Unknown]
  - Joint swelling [Unknown]
  - Drug intolerance [Unknown]
